FAERS Safety Report 4669571-4 (Version None)
Quarter: 2005Q2

REPORT INFORMATION
  Report Type: 
  Country: None (occurrence: None)
  Receive Date: 20050523
  Receipt Date: 20050106
  Transmission Date: 20051028
  Serious: Yes (Other)
  Sender: FDA-Public Use
  Company Number: PHEH2005US00664

PATIENT
  Age: 65 Year
  Sex: Female

DRUGS (4)
  1. AREDIA [Suspect]
     Indication: MULTIPLE MYELOMA
     Dosage: 90MG Q4W
     Dates: start: 19980807, end: 20020306
  2. ZOMETA [Suspect]
     Indication: MULTIPLE MYELOMA
     Dosage: 4MG QMO
     Dates: start: 20020403, end: 20040701
  3. ZOMETA [Suspect]
     Dosage: 4MG Q3MO
     Dates: end: 20041202
  4. ANTIBIOTICS [Concomitant]
     Route: 042
     Dates: start: 20020101

REACTIONS (7)
  - ENDODONTIC PROCEDURE [None]
  - OSTEOMYELITIS [None]
  - OSTEONECROSIS [None]
  - PAIN [None]
  - PERIODONTAL OPERATION [None]
  - TOOTH EXTRACTION [None]
  - TOOTH INJURY [None]
